FAERS Safety Report 24240894 (Version 1)
Quarter: 2024Q3

REPORT INFORMATION
  Report Type: Spontaneous
  Country: US (occurrence: US)
  Receive Date: 20240823
  Receipt Date: 20240823
  Transmission Date: 20241017
  Serious: No
  Sender: CHIESI
  Company Number: US-CHIESI-2024CHF03635

PATIENT
  Age: 8 Year
  Sex: Male

DRUGS (1)
  1. LAMZEDE [Suspect]
     Active Substance: VELMANASE ALFA-TYCV
     Indication: Alpha-mannosidosis
     Dosage: UNK, QW
     Route: 042

REACTIONS (2)
  - Disturbance in attention [Unknown]
  - Energy increased [Unknown]
